FAERS Safety Report 6496843-3 (Version None)
Quarter: 2009Q4

REPORT INFORMATION
  Report Type: 
  Country: None (occurrence: None)
  Receive Date: 20091125
  Receipt Date: 20090420
  Transmission Date: 20100525
  Serious: Yes (Other)
  Sender: FDA-Public Use
  Company Number: 2009BH006327

PATIENT
  Age: 38 Year
  Sex: Female

DRUGS (24)
  1. DIANEAL [Suspect]
     Indication: PERITONEAL DIALYSIS
     Dosage: 12 L; EVERY DAY; IP
     Route: 033
     Dates: start: 20080505, end: 20081111
  2. HECTOROL [Concomitant]
  3. RENAGEL [Concomitant]
  4. MAGNESIUM [Concomitant]
  5. LISINOPRIL [Concomitant]
  6. FERROUS SULFATE TAB [Concomitant]
  7. METOCLOPRAMIDE [Concomitant]
  8. DIALYVITE [Concomitant]
  9. LORTAB [Concomitant]
  10. NOVOLOG [Concomitant]
  11. LANTUS [Concomitant]
  12. TOPAMAX [Concomitant]
  13. PHENERGAN HCL [Concomitant]
  14. METOPROLOL [Concomitant]
  15. GEMFIBROZIL [Concomitant]
  16. PROZAC [Concomitant]
  17. SEROQUEL [Concomitant]
  18. CLINAZEPAM [Concomitant]
  19. EPOGEN [Concomitant]
  20. PRILOSEC [Concomitant]
  21. CLARITIN [Concomitant]
  22. ASPIRIN [Concomitant]
  23. PLAQUENIC [Concomitant]
  24. MIRALAX [Concomitant]

REACTIONS (1)
  - PERITONITIS [None]
